FAERS Safety Report 6974600-9 (Version None)
Quarter: 2010Q3

REPORT INFORMATION
  Report Type: 
  Country: None (occurrence: None)
  Receive Date: 20100909
  Receipt Date: 20080731
  Transmission Date: 20110219
  Serious: No
  Sender: FDA-Public Use
  Company Number: US-WYE-H05336208

PATIENT
  Age: 75 Year
  Sex: Male
  Weight: 83.99 kg

DRUGS (1)
  1. PROTONIX [Suspect]
     Indication: PEPTIC ULCER
     Route: 048
     Dates: start: 20080701

REACTIONS (1)
  - FAECES DISCOLOURED [None]
